FAERS Safety Report 6285223-1 (Version None)
Quarter: 2009Q3

REPORT INFORMATION
  Report Type: 
  Country: None (occurrence: None)
  Receive Date: 20090727
  Receipt Date: 20090722
  Transmission Date: 20100115
  Serious: Yes (Death, Hospitalization, Other)
  Sender: FDA-Public Use
  Company Number: PHHY2009EC30724

PATIENT
  Age: 65 Year
  Sex: Male

DRUGS (5)
  1. EXELON [Suspect]
     Indication: DEMENTIA ALZHEIMER'S TYPE
     Dosage: 1.5 MG
     Route: 048
     Dates: start: 20010101
  2. EXELON [Suspect]
     Dosage: 4.5 MG, BID
     Route: 048
     Dates: end: 20070701
  3. RISPERIDONE [Concomitant]
  4. MEMANTINE [Concomitant]
  5. CLONAZEPAM [Concomitant]

REACTIONS (10)
  - ASPIRATION BRONCHIAL [None]
  - COUGH [None]
  - DEHYDRATION [None]
  - DEMENTIA ALZHEIMER'S TYPE [None]
  - DIARRHOEA [None]
  - DYSPHAGIA [None]
  - GAIT DISTURBANCE [None]
  - GENERAL PHYSICAL HEALTH DETERIORATION [None]
  - INCREASED UPPER AIRWAY SECRETION [None]
  - MUSCLE RIGIDITY [None]
